FAERS Safety Report 19011623 (Version 6)
Quarter: 2021Q2

REPORT INFORMATION
  Report Type: Report from Study
  Country: CA (occurrence: CA)
  Receive Date: 20210316
  Receipt Date: 20210608
  Transmission Date: 20210717
  Serious: Yes (Hospitalization, Other)
  Sender: FDA-Public Use
  Company Number: CA-JNJFOC-20210320148

PATIENT
  Age: 29 Year
  Sex: Male

DRUGS (3)
  1. REMICADE [Suspect]
     Active Substance: INFLIXIMAB
     Dosage: ON 19?APR?2021, THE PATIENT RECEIVED 46TH 850 MG INFLIXIMAB, INFUSION.
     Route: 042
     Dates: start: 2021
  2. REMICADE [Suspect]
     Active Substance: INFLIXIMAB
     Route: 042
  3. REMICADE [Suspect]
     Active Substance: INFLIXIMAB
     Indication: CROHN^S DISEASE
     Dosage: DOSE INCREASED
     Route: 042
     Dates: start: 20140415

REACTIONS (6)
  - Crohn^s disease [Recovering/Resolving]
  - Off label use [Unknown]
  - Schizophrenia [Unknown]
  - Bacteraemia [Unknown]
  - Escherichia infection [Recovered/Resolved]
  - Product use issue [Unknown]

NARRATIVE: CASE EVENT DATE: 2021
